FAERS Safety Report 6511417-3 (Version None)
Quarter: 2009Q4

REPORT INFORMATION
  Report Type: 
  Country: None (occurrence: None)
  Receive Date: 20091222
  Receipt Date: 20090312
  Transmission Date: 20100525
  Serious: No
  Sender: FDA-Public Use
  Company Number: US-ASTRAZENECA-2009UW06581

PATIENT
  Age: 29410 Day
  Sex: Female
  Weight: 109.8 kg

DRUGS (5)
  1. CRESTOR [Suspect]
     Route: 048
     Dates: start: 20090305
  2. BENICAR [Concomitant]
  3. DIAZIDE [Concomitant]
  4. TYLENOL (CAPLET) [Concomitant]
  5. GLUMETZA [Concomitant]

REACTIONS (1)
  - MUSCLE SPASMS [None]
